FAERS Safety Report 7433110-5 (Version None)
Quarter: 2011Q2

REPORT INFORMATION
  Report Type: 
  Country: None (occurrence: None)
  Receive Date: 20110422
  Receipt Date: 20110210
  Transmission Date: 20111010
  Serious: Yes (Other)
  Sender: FDA-Public Use
  Company Number: JP-ASTRAZENECA-2011SE08161

PATIENT
  Age: 61 Year
  Sex: Female
  Weight: 52.6 kg

DRUGS (15)
  1. CRAVIT [Suspect]
     Indication: CONJUNCTIVITIS ALLERGIC
     Dosage: THREE TIMES A DAY
     Route: 031
     Dates: start: 20090101
  2. ADETPHOS [Suspect]
     Indication: MENIERE'S DISEASE
     Dosage: AS REQUIRED
     Route: 048
     Dates: start: 20080101
  3. NORVASC [Suspect]
     Route: 048
     Dates: start: 20091024
  4. ALFAROL [Suspect]
     Indication: OSTEOPOROSIS
     Route: 048
     Dates: start: 20041028
  5. FOLIC ACID [Suspect]
     Indication: RHEUMATOID ARTHRITIS
     Route: 048
     Dates: start: 20090826, end: 20100629
  6. HYALEIN [Suspect]
     Indication: KERATOCONJUNCTIVITIS SICCA
     Dosage: FOUR TIMES A DAY
     Route: 031
     Dates: start: 20090101
  7. PLACEBO [Suspect]
     Indication: RHEUMATOID ARTHRITIS
     Route: 048
     Dates: start: 20100215, end: 20100630
  8. OMEPRAL [Suspect]
     Indication: GASTRITIS PROPHYLAXIS
     Route: 048
     Dates: start: 20070629
  9. FLUMETHOLON [Suspect]
     Indication: CONJUNCTIVITIS ALLERGIC
     Dosage: THREE TIMES A DAY
     Route: 031
     Dates: start: 20090101
  10. METHYCOBAL [Suspect]
     Indication: MENIERE'S DISEASE
     Dosage: AS REQUIRED
     Route: 048
     Dates: start: 20080101
  11. METHOTREXATE SODIUM [Suspect]
     Route: 048
     Dates: start: 20100726
  12. MICARDIS [Suspect]
     Indication: HYPERTENSION
     Route: 048
     Dates: start: 20080620
  13. CEPHADOL [Suspect]
     Indication: MENIERE'S DISEASE
     Dosage: AS REQUIRED
     Route: 048
     Dates: start: 20080101
  14. FOLIC ACID [Suspect]
     Route: 048
     Dates: start: 20100727
  15. METHOTREXATE SODIUM [Suspect]
     Indication: RHEUMATOID ARTHRITIS
     Route: 048
     Dates: start: 20091221, end: 20100628

REACTIONS (1)
  - BASAL CELL CARCINOMA [None]
